FAERS Safety Report 7479785-6 (Version None)
Quarter: 2011Q2

REPORT INFORMATION
  Report Type: 
  Country: None (occurrence: None)
  Receive Date: 20110513
  Receipt Date: 20110509
  Transmission Date: 20111010
  Serious: Yes (Death)
  Sender: FDA-Public Use
  Company Number: JP-MERCK-1101USA01657

PATIENT
  Age: 56 Year
  Sex: Male

DRUGS (6)
  1. CYCLOPHOSPHAMIDE [Concomitant]
     Route: 065
  2. CYTARABINE [Concomitant]
     Route: 065
  3. ONCOVIN [Concomitant]
     Route: 042
  4. DOXORUBICIN HYDROCHLORIDE [Concomitant]
     Route: 042
  5. DECADRON [Suspect]
     Route: 048
  6. ETOPOSIDE [Concomitant]
     Route: 065

REACTIONS (2)
  - PNEUMONIA [None]
  - BONE MARROW DISORDER [None]
